FAERS Safety Report 23320054 (Version 1)
Quarter: 2023Q4

REPORT INFORMATION
  Report Type: Other
  Country: CA (occurrence: None)
  Receive Date: 20231220
  Receipt Date: 20231220
  Transmission Date: 20240110
  Serious: Yes (Hospitalization, Other)
  Sender: FDA-Public Use
  Company Number: CA-ROCHE-3464518

PATIENT
  Age: 59 Year
  Sex: Male

DRUGS (1)
  1. ENSPRYNG [Suspect]
     Active Substance: SATRALIZUMAB-MWGE
     Indication: Neuromyelitis optica spectrum disorder
     Dosage: AT WEEKS 0, 2, AND 4 THEN EVERY 4 WEEKS
     Route: 058
     Dates: start: 20210605

REACTIONS (4)
  - Neuromyelitis optica spectrum disorder [Unknown]
  - Hemiplegia [Not Recovered/Not Resolved]
  - Spinal cord disorder [Unknown]
  - Infection [Recovered/Resolved]

NARRATIVE: CASE EVENT DATE: 20230401
